FAERS Safety Report 8960990 (Version 5)
Quarter: 2013Q4

REPORT INFORMATION
  Report Type: Report from Study
  Country: JP (occurrence: JP)
  Receive Date: 20121212
  Receipt Date: 20131016
  Transmission Date: 20140711
  Serious: Yes (Hospitalization, Disabling, Other)
  Sender: FDA-Public Use
  Company Number: JP-AMGEN-JPNCT2012080089

PATIENT
  Age: 61 Year
  Sex: Male
  Weight: 58 kg

DRUGS (15)
  1. ROMIPLOSTIM - KHK [Suspect]
     Indication: IMMUNE THROMBOCYTOPENIC PURPURA
     Dosage: 8 MUG/KG, UNK
     Route: 058
     Dates: start: 20111011
  2. PREDONINE /00016201/ [Suspect]
     Indication: IMMUNE THROMBOCYTOPENIC PURPURA
     Dosage: 10 MG, UNK
     Route: 048
     Dates: start: 20110927
  3. PREDONINE /00016204/ [Suspect]
     Indication: IMMUNE THROMBOCYTOPENIC PURPURA
     Dosage: 60 MG, UNK
     Route: 042
     Dates: start: 20111012
  4. NEORAL [Suspect]
     Indication: IMMUNE THROMBOCYTOPENIC PURPURA
     Dosage: 200 MG, UNK
     Route: 048
     Dates: start: 20121225
  5. BAYASPIRIN [Suspect]
     Indication: PRODUCT USED FOR UNKNOWN INDICATION
     Dosage: UNK
     Route: 048
  6. DEXART [Concomitant]
     Indication: IMMUNE THROMBOCYTOPENIC PURPURA
     Dosage: 33 MG, UNK
     Route: 065
     Dates: start: 20121220, end: 20130108
  7. SOL-MELCORT [Concomitant]
     Indication: IMMUNE THROMBOCYTOPENIC PURPURA
     Dosage: UNK
     Route: 042
     Dates: start: 20111011, end: 20120125
  8. GLOVENIN-I [Concomitant]
     Indication: IMMUNE THROMBOCYTOPENIC PURPURA
     Dosage: UNK
     Route: 042
     Dates: start: 20111011, end: 20111102
  9. DIOVAN [Concomitant]
     Indication: HYPERTENSION
     Dosage: UNK
     Route: 048
  10. FERROMIA [Concomitant]
     Indication: ANAEMIA
     Dosage: UNK
     Route: 048
  11. PURSENNID [Concomitant]
     Indication: CONSTIPATION
     Dosage: UNK
     Route: 048
  12. NISSEKI POLYGLOBIN N [Concomitant]
     Indication: IMMUNE THROMBOCYTOPENIC PURPURA
     Dosage: 20000 MG, UNK
     Route: 042
     Dates: start: 20120123, end: 20121223
  13. OMEPRAL                            /00661201/ [Concomitant]
     Indication: GASTROINTESTINAL HAEMORRHAGE
     Route: 048
  14. ADONA /00056903/ [Concomitant]
     Indication: GASTROINTESTINAL HAEMORRHAGE
     Dosage: UNK
     Route: 042
  15. TRANSAMIN [Concomitant]
     Indication: GASTROINTESTINAL HAEMORRHAGE
     Dosage: UNK
     Route: 042

REACTIONS (8)
  - Cerebral infarction [Recovered/Resolved]
  - Retinal haemorrhage [Recovering/Resolving]
  - Subcutaneous haematoma [Recovered/Resolved with Sequelae]
  - Upper gastrointestinal haemorrhage [Recovering/Resolving]
  - Blood alkaline phosphatase increased [Recovered/Resolved]
  - Herpes simplex [Recovered/Resolved]
  - Oral candidiasis [Recovered/Resolved]
  - Enteritis infectious [Recovered/Resolved]
